FAERS Safety Report 9098521 (Version 2)
Quarter: 2013Q1

REPORT INFORMATION
  Report Type: Spontaneous
  Country: NO (occurrence: NO)
  Receive Date: 20130213
  Receipt Date: 20130215
  Transmission Date: 20140127
  Serious: Yes (Life-Threatening, Hospitalization)
  Sender: FDA-Public Use
  Company Number: NO-ASTRAZENECA-2013SE09371

PATIENT
  Sex: Male

DRUGS (3)
  1. SELO-ZOK [Suspect]
     Route: 048
  2. SELO-ZOK [Suspect]
     Route: 048
  3. COAPROVEL [Concomitant]
     Dosage: 150/12.5 MG PER DAY

REACTIONS (4)
  - Malaise [Unknown]
  - Gait disturbance [Unknown]
  - Heart rate decreased [Unknown]
  - Drug dispensing error [Unknown]
